FAERS Safety Report 10426692 (Version 1)
Quarter: 2014Q3

REPORT INFORMATION
  Report Type: Spontaneous
  Country: US (occurrence: None)
  Receive Date: 20140902
  Receipt Date: 20140902
  Transmission Date: 20150326
  Serious: Yes (Life-Threatening, Disabling)
  Sender: FDA-Public Use
  Company Number: None

PATIENT
  Age: 18 Year
  Sex: Female
  Weight: 52.16 kg

DRUGS (2)
  1. CYMBALTA [Suspect]
     Active Substance: DULOXETINE HYDROCHLORIDE
     Indication: ANXIETY
     Route: 048
     Dates: start: 20140620, end: 20140824
  2. CYMBALTA [Suspect]
     Active Substance: DULOXETINE HYDROCHLORIDE
     Indication: DEPRESSION
     Route: 048
     Dates: start: 20140620, end: 20140824

REACTIONS (21)
  - Visual impairment [None]
  - Mental disorder [None]
  - Paraesthesia [None]
  - Condition aggravated [None]
  - Hypersensitivity [None]
  - Nausea [None]
  - Bipolar disorder [None]
  - Hot flush [None]
  - Depression [None]
  - Anxiety [None]
  - Crying [None]
  - Disorientation [None]
  - Irritability [None]
  - Hostility [None]
  - Dyskinesia [None]
  - Fatigue [None]
  - Dizziness [None]
  - Agitation [None]
  - Diarrhoea [None]
  - Mania [None]
  - Drug dependence [None]

NARRATIVE: CASE EVENT DATE: 20140827
